FAERS Safety Report 16061908 (Version 1)
Quarter: 2019Q1

REPORT INFORMATION
  Report Type: Spontaneous
  Country: US (occurrence: US)
  Receive Date: 20190312
  Receipt Date: 20190312
  Transmission Date: 20190418
  Serious: Yes (Life-Threatening, Other)
  Sender: FDA-Public Use
  Company Number: US-BAYER-2019-045030

PATIENT
  Age: 69 Year
  Sex: Male
  Weight: 127 kg

DRUGS (1)
  1. ALEVE [Suspect]
     Active Substance: NAPROXEN SODIUM
     Dosage: 1 DF, ONCE

REACTIONS (4)
  - Adverse drug reaction [Recovered/Resolved]
  - Blood pressure decreased [Recovered/Resolved]
  - Gait inability [Recovered/Resolved]
  - Pruritus [Recovered/Resolved]

NARRATIVE: CASE EVENT DATE: 2015
